FAERS Safety Report 9477404 (Version 2)
Quarter: 2013Q3

REPORT INFORMATION
  Report Type: Spontaneous
  Country: US (occurrence: US)
  Receive Date: 20130826
  Receipt Date: 20130829
  Transmission Date: 20140515
  Serious: No
  Sender: FDA-Public Use
  Company Number: US-009507513-1308USA010066

PATIENT
  Age: 24 Year
  Sex: Female
  Weight: 133 kg

DRUGS (1)
  1. NEXPLANON [Suspect]
     Indication: CONTRACEPTION
     Dosage: EVERY 3 YEARS, ONE ROD
     Route: 059
     Dates: start: 20130513

REACTIONS (2)
  - Breast pain [Unknown]
  - Implant site hypoaesthesia [Unknown]
